FAERS Safety Report 4635220-4 (Version None)
Quarter: 2005Q2

REPORT INFORMATION
  Report Type: 
  Country: None (occurrence: None)
  Receive Date: 20050411
  Receipt Date: 20050328
  Transmission Date: 20051028
  Serious: Yes (Hospitalization)
  Sender: FDA-Public Use
  Company Number: 2004UW25130

PATIENT
  Age: 80 Year
  Sex: Male
  Weight: 94.8018 kg

DRUGS (4)
  1. IRESSA [Suspect]
     Indication: NON-SMALL CELL LUNG CANCER
     Dosage: 250 MG QD PO
     Route: 048
     Dates: start: 20040812, end: 20040925
  2. COUMADIN [Suspect]
     Indication: DEEP VEIN THROMBOSIS
  3. GLUCOPHAGE [Concomitant]
  4. ANTIHYPERTENSIVE [Concomitant]

REACTIONS (34)
  - ABDOMINAL PAIN UPPER [None]
  - ACTIVATED PARTIAL THROMBOPLASTIN TIME PROLONGED [None]
  - ANAEMIA [None]
  - ATELECTASIS [None]
  - ATRIAL FIBRILLATION [None]
  - BLOOD ALBUMIN DECREASED [None]
  - BLOOD BICARBONATE INCREASED [None]
  - BLOOD CREATININE INCREASED [None]
  - BLOOD POTASSIUM INCREASED [None]
  - BLOOD PRESSURE DIASTOLIC DECREASED [None]
  - BLOOD UREA INCREASED [None]
  - CARDIAC FAILURE CONGESTIVE [None]
  - CIRCULATORY COLLAPSE [None]
  - COAGULOPATHY [None]
  - DUODENAL ULCER [None]
  - FALL [None]
  - HAEMATEMESIS [None]
  - HAEMATOCHEZIA [None]
  - HILAR LYMPHADENOPATHY [None]
  - HYPOTHERMIA [None]
  - INTERNATIONAL NORMALISED RATIO INCREASED [None]
  - INTESTINAL HAEMORRHAGE [None]
  - MASS [None]
  - METASTASES TO PLEURA [None]
  - OEDEMA PERIPHERAL [None]
  - OESOPHAGITIS ULCERATIVE [None]
  - PALLOR [None]
  - PCO2 DECREASED [None]
  - PROTEIN TOTAL DECREASED [None]
  - PROTHROMBIN TIME PROLONGED [None]
  - TACHYCARDIA [None]
  - UPPER GASTROINTESTINAL HAEMORRHAGE [None]
  - URINARY TRACT INFECTION [None]
  - WHITE BLOOD CELL COUNT INCREASED [None]
